FAERS Safety Report 16705399 (Version 3)
Quarter: 2019Q4

REPORT INFORMATION
  Report Type: Report from Study
  Country: None (occurrence: CO)
  Receive Date: 20190815
  Receipt Date: 20191120
  Transmission Date: 20200122
  Serious: Yes (Hospitalization)
  Sender: FDA-Public Use
  Company Number: CO-ABBVIE-19K-036-2650845-00

PATIENT
  Age: 65 Year
  Sex: Female
  Weight: 55 kg

DRUGS (3)
  1. HUMIRA [Suspect]
     Active Substance: ADALIMUMAB
     Indication: PSORIASIS
     Route: 058
     Dates: start: 2018, end: 20181203
  2. HUMIRA [Suspect]
     Active Substance: ADALIMUMAB
     Route: 058
     Dates: start: 20190826
  3. HUMIRA [Suspect]
     Active Substance: ADALIMUMAB
     Indication: PSORIASIS
     Route: 058
     Dates: start: 20090317

REACTIONS (13)
  - Gait disturbance [Recovering/Resolving]
  - Headache [Recovered/Resolved]
  - Vomiting [Unknown]
  - Headache [Unknown]
  - Influenza [Recovering/Resolving]
  - Skin wrinkling [Unknown]
  - Psoriasis [Not Recovered/Not Resolved]
  - Musculoskeletal stiffness [Unknown]
  - Rheumatoid arthritis [Recovering/Resolving]
  - Finger deformity [Unknown]
  - Hypertension [Unknown]
  - Chills [Not Recovered/Not Resolved]
  - Psoriasis [Recovered/Resolved]

NARRATIVE: CASE EVENT DATE: 2011
